FAERS Safety Report 18312921 (Version 1)
Quarter: 2020Q3

REPORT INFORMATION
  Report Type: Spontaneous
  Country: US (occurrence: US)
  Receive Date: 20200925
  Receipt Date: 20200925
  Transmission Date: 20201103
  Serious: No
  Sender: FDA-Public Use
  Company Number: None

PATIENT
  Age: 25 Year
  Sex: Female
  Weight: 111.15 kg

DRUGS (4)
  1. MELATONIN [Concomitant]
     Active Substance: MELATONIN
  2. NORETHINDRONE. [Concomitant]
     Active Substance: NORETHINDRONE
  3. PRENATAL VITAMINS [Concomitant]
     Active Substance: VITAMINS
  4. SERTRALINE 50MG TABLETS [Suspect]
     Active Substance: SERTRALINE HYDROCHLORIDE
     Indication: PERINATAL DEPRESSION
     Dosage: ?          QUANTITY:1 TABLET(S);?
     Route: 048
     Dates: start: 20200918, end: 20200924

REACTIONS (5)
  - Hyperhidrosis [None]
  - Diarrhoea [None]
  - Back pain [None]
  - Muscle spasms [None]
  - Vomiting [None]

NARRATIVE: CASE EVENT DATE: 20200921
